FAERS Safety Report 4743356-2 (Version None)
Quarter: 2005Q3

REPORT INFORMATION
  Report Type: 
  Country: None (occurrence: None)
  Receive Date: 20050809
  Receipt Date: 20050801
  Transmission Date: 20060218
  Serious: Yes (Hospitalization)
  Sender: FDA-Public Use
  Company Number: 215120

PATIENT
  Age: 60 Year
  Sex: Male
  Weight: 59.6 kg

DRUGS (13)
  1. AVASTIN [Suspect]
     Indication: RENAL CELL CARCINOMA STAGE UNSPECIFIED
     Dosage: 10 MG/KG, INTRAVENOUS
     Route: 042
     Dates: start: 20050419
  2. ERLOTINIB (ERLOTINIB) TABLET, 150MG [Suspect]
     Indication: RENAL CELL CARCINOMA STAGE UNSPECIFIED
     Dosage: 150 MG,
     Dates: start: 20050419
  3. GLEEVEC [Suspect]
     Indication: RENAL CELL CARCINOMA STAGE UNSPECIFIED
     Dosage: 400 MG, ORAL
     Route: 048
     Dates: start: 20050419
  4. MEGACE [Concomitant]
  5. MINOCYCLINE HCL [Concomitant]
  6. LOMOTIL [Concomitant]
  7. ZOCOR [Concomitant]
  8. ACTOS [Concomitant]
  9. PERINDOPRIL (PERINDOPRIL) [Concomitant]
  10. MORPHINE SULFATE [Concomitant]
  11. PHENERGAN (PROMETHAZINE HYDROCHLORIDE) [Concomitant]
  12. IMODIUM [Concomitant]
  13. OXYCODONE/ACETAMINOPHEN (5/325) (ACETAMINOPHEN, OXYCODONE HYDROCHLORID [Concomitant]

REACTIONS (10)
  - ALANINE AMINOTRANSFERASE INCREASED [None]
  - ASPARTATE AMINOTRANSFERASE INCREASED [None]
  - BLOOD BILIRUBIN INCREASED [None]
  - BLOOD CALCIUM INCREASED [None]
  - BLOOD CORTISOL INCREASED [None]
  - DIARRHOEA [None]
  - HYPOVOLAEMIA [None]
  - PANCREATIC NEOPLASM [None]
  - RENAL FAILURE ACUTE [None]
  - RENAL NEOPLASM [None]
